FAERS Safety Report 7102831-6 (Version None)
Quarter: 2010Q4

REPORT INFORMATION
  Report Type: 
  Country: None (occurrence: None)
  Receive Date: 20101115
  Receipt Date: 20101108
  Transmission Date: 20110411
  Serious: Yes (Death, Hospitalization, Other)
  Sender: FDA-Public Use
  Company Number: PHHY2010US21619

PATIENT
  Sex: Male
  Weight: 141 kg

DRUGS (3)
  1. EXJADE [Suspect]
     Indication: NON-HODGKIN'S LYMPHOMA
     Dosage: 1250 MG, QD
     Route: 048
     Dates: start: 20080117
  2. EXJADE [Suspect]
     Indication: SERUM FERRITIN INCREASED
  3. TYLENOL [Concomitant]
     Dosage: PRN

REACTIONS (34)
  - ABDOMINAL DISTENSION [None]
  - ABDOMINAL PAIN [None]
  - APLASTIC ANAEMIA [None]
  - BREATH SOUNDS ABNORMAL [None]
  - CALCULUS URETERIC [None]
  - CLOSTRIDIUM DIFFICILE COLITIS [None]
  - CONJUNCTIVAL PALLOR [None]
  - COUGH [None]
  - DEATH [None]
  - DECREASED APPETITE [None]
  - DIALYSIS [None]
  - DIARRHOEA [None]
  - DRUG INTOLERANCE [None]
  - DYSPNOEA [None]
  - ENTERITIS [None]
  - GASTROINTESTINAL SOUNDS ABNORMAL [None]
  - HEPATIC INFECTION [None]
  - HEPATOSPLENOMEGALY [None]
  - HICCUPS [None]
  - HYPOPHAGIA [None]
  - LUNG INFECTION [None]
  - METASTASES TO LIVER [None]
  - METASTASES TO LUNG [None]
  - MYCOBACTERIUM KANSASII INFECTION [None]
  - NAUSEA [None]
  - PULMONARY TUBERCULOSIS [None]
  - PYREXIA [None]
  - RENAL FAILURE [None]
  - SERUM FERRITIN INCREASED [None]
  - TREATMENT NONCOMPLIANCE [None]
  - TUBERCULOSIS [None]
  - VENTRICULAR TACHYCARDIA [None]
  - VOMITING [None]
  - WEIGHT DECREASED [None]
